FAERS Safety Report 6104067-4 (Version None)
Quarter: 2009Q1

REPORT INFORMATION
  Report Type: 
  Country: None (occurrence: None)
  Receive Date: 20090305
  Receipt Date: 20090223
  Transmission Date: 20090719
  Serious: Yes (Hospitalization)
  Sender: FDA-Public Use
  Company Number: FR-PFIZER INC-2009175429

PATIENT

DRUGS (6)
  1. TRIFLUCAN [Suspect]
     Indication: INFECTION
     Dosage: 400 MG, 1X/DAY
     Route: 042
     Dates: start: 20080923, end: 20080928
  2. VANCOMYCIN [Suspect]
     Indication: INFECTION
     Dosage: UNK
     Route: 042
     Dates: start: 20080925, end: 20081001
  3. CYTARABINE [Concomitant]
     Dates: start: 20080918
  4. DAUNORUBICIN HYDROCHLORIDE [Concomitant]
     Dates: start: 20080918
  5. PIPERACILLIN AND TAZOBACTAM [Concomitant]
     Dosage: UNK
     Dates: start: 20080901
  6. DEXCHLORPHENIRAMINE MALEATE [Concomitant]
     Dates: start: 20080923, end: 20081015

REACTIONS (3)
  - HYPERHIDROSIS [None]
  - HYPOTENSION [None]
  - SKIN DISORDER [None]
